FAERS Safety Report 16143944 (Version 6)
Quarter: 2019Q3

REPORT INFORMATION
  Report Type: Report from Study
  Country: CO (occurrence: CO)
  Receive Date: 20190401
  Receipt Date: 20190910
  Transmission Date: 20191004
  Serious: Yes (Death, Life-Threatening, Hospitalization, Other)
  Sender: FDA-Public Use
  Company Number: PHHY2019CO073047

PATIENT
  Age: 93 Year
  Sex: Female
  Weight: 57 kg

DRUGS (13)
  1. REVOLADE [Suspect]
     Active Substance: ELTROMBOPAG
     Indication: APLASTIC ANAEMIA
     Dosage: 150 MG, QD
     Route: 048
     Dates: start: 201902
  2. POTASSIUM [Concomitant]
     Active Substance: POTASSIUM
     Indication: PRODUCT USED FOR UNKNOWN INDICATION
     Route: 065
  3. REVOLADE [Suspect]
     Active Substance: ELTROMBOPAG
     Dosage: 50 MG, Q12H, FOR 28 DAYS
     Route: 048
     Dates: start: 20190426
  4. TRAZODONE HYDROCHLORIDE. [Concomitant]
     Active Substance: TRAZODONE HYDROCHLORIDE
     Indication: PRODUCT USED FOR UNKNOWN INDICATION
     Dosage: 0.5 DF, QHS,INJECTABLE SOLUTION
     Route: 048
  5. ERYTHROPOIETIN HUMAN [Concomitant]
     Active Substance: ERYTHROPOIETIN
     Indication: PRODUCT USED FOR UNKNOWN INDICATION
     Dosage: 30000 IU, QW FOR 4 WEEKS ,SOLUTION FOR INJECTION
     Route: 058
  6. SYNTHROID [Concomitant]
     Active Substance: LEVOTHYROXINE SODIUM
     Indication: PRODUCT USED FOR UNKNOWN INDICATION
     Dosage: 1 DF, WHILE FASTING
     Route: 048
  7. MAGNESIUM [Concomitant]
     Active Substance: MAGNESIUM
     Indication: PRODUCT USED FOR UNKNOWN INDICATION
     Route: 065
  8. AMLODIPINE AND VALSARTAN [Concomitant]
     Active Substance: AMLODIPINE\VALSARTAN
     Indication: PRODUCT USED FOR UNKNOWN INDICATION
     Route: 065
  9. REVOLADE [Suspect]
     Active Substance: ELTROMBOPAG
     Dosage: 50 MG, Q12H, FOR 3 MONTHS
     Route: 048
     Dates: start: 20190402
  10. PREDNISOLONE. [Concomitant]
     Active Substance: PREDNISOLONE
     Indication: PRODUCT USED FOR UNKNOWN INDICATION
     Dosage: 5 MG, QD
     Route: 065
  11. BETALOC [Concomitant]
     Active Substance: METOPROLOL TARTRATE
     Indication: PRODUCT USED FOR UNKNOWN INDICATION
     Route: 065
  12. ATORVASTATIN CALCIUM. [Suspect]
     Active Substance: ATORVASTATIN CALCIUM
     Indication: PRODUCT USED FOR UNKNOWN INDICATION
     Dosage: 20 MG, QD
     Route: 065
  13. CALCIUM [Concomitant]
     Active Substance: CALCIUM
     Indication: PRODUCT USED FOR UNKNOWN INDICATION
     Route: 065

REACTIONS (35)
  - Pancytopenia [Unknown]
  - Malaise [Unknown]
  - Eyelid oedema [Unknown]
  - Conjunctival pallor [Unknown]
  - Inappropriate schedule of product administration [Unknown]
  - Urinary tract infection [Unknown]
  - Anxiety [Unknown]
  - Ischaemia [Unknown]
  - Pneumonia [Unknown]
  - Delirium [Unknown]
  - Plasma cell myeloma [Unknown]
  - Gastritis [Unknown]
  - Proctalgia [Unknown]
  - Pain in extremity [Unknown]
  - Haematoma [Unknown]
  - Abdominal distension [Unknown]
  - Incorrect dose administered [Unknown]
  - Seizure [Unknown]
  - Vomiting [Unknown]
  - Hernia [Unknown]
  - Concomitant disease aggravated [Unknown]
  - Increased appetite [Unknown]
  - Gastrointestinal sounds abnormal [Unknown]
  - Drug ineffective [Unknown]
  - Rectal haemorrhage [Unknown]
  - Haemorrhoids [Unknown]
  - Procalcitonin decreased [Unknown]
  - Dizziness [Unknown]
  - Blood pressure decreased [Unknown]
  - Death [Fatal]
  - Aphasia [Unknown]
  - Haematocrit decreased [Unknown]
  - Abdominal pain [Unknown]
  - Platelet count increased [Unknown]
  - Constipation [Unknown]

NARRATIVE: CASE EVENT DATE: 20190320
